FAERS Safety Report 17993711 (Version 1)
Quarter: 2020Q3

REPORT INFORMATION
  Report Type: Spontaneous
  Country: US (occurrence: US)
  Receive Date: 20200707
  Receipt Date: 20200707
  Transmission Date: 20201103
  Serious: Yes (Hospitalization)
  Sender: FDA-Public Use
  Company Number: None

PATIENT
  Age: 68 Year
  Sex: Male

DRUGS (19)
  1. FERROUS [Concomitant]
     Active Substance: IRON
  2. VOTRIENT [Suspect]
     Active Substance: PAZOPANIB HYDROCHLORIDE
     Indication: RENAL CANCER
     Route: 048
     Dates: start: 20180825
  3. AZITHROMYCIN ANHYDROUS. [Concomitant]
     Active Substance: AZITHROMYCIN ANHYDROUS
  4. SEVELAMER [Concomitant]
     Active Substance: SEVELAMER
  5. TAMSULOSIN [Concomitant]
     Active Substance: TAMSULOSIN
  6. GLUC [Concomitant]
  7. FUROSEMIDE. [Concomitant]
     Active Substance: FUROSEMIDE
  8. LEVOTHYROXIN [Concomitant]
     Active Substance: LEVOTHYROXINE
  9. PRORENAL+D [Concomitant]
  10. ATORVASTATIN [Concomitant]
     Active Substance: ATORVASTATIN
  11. RAMIPRIL. [Concomitant]
     Active Substance: RAMIPRIL
  12. AMLODIPINE [Concomitant]
     Active Substance: AMLODIPINE BESYLATE
  13. HYDRALAZINE [Concomitant]
     Active Substance: HYDRALAZINE HYDROCHLORIDE
  14. PARICALCITOL. [Concomitant]
     Active Substance: PARICALCITOL
  15. ALLOPURINOL. [Concomitant]
     Active Substance: ALLOPURINOL
  16. BENZONATATE. [Concomitant]
     Active Substance: BENZONATATE
  17. GABAPENTIN. [Concomitant]
     Active Substance: GABAPENTIN
  18. OMEPRAZOLE. [Concomitant]
     Active Substance: OMEPRAZOLE
  19. SODIUM BICAR [Concomitant]

REACTIONS (2)
  - Pneumonia [None]
  - Sepsis [None]

NARRATIVE: CASE EVENT DATE: 20200602
